FAERS Safety Report 10672589 (Version 1)
Quarter: 2014Q4

REPORT INFORMATION
  Report Type: Spontaneous
  Country: NZ (occurrence: NZ)
  Receive Date: 20141223
  Receipt Date: 20141223
  Transmission Date: 20150529
  Serious: Yes (Other)
  Sender: FDA-Public Use
  Company Number: NZ-JNJFOC-20141214059

PATIENT
  Age: 58 Year
  Sex: Female

DRUGS (2)
  1. REMICADE [Suspect]
     Active Substance: INFLIXIMAB
     Indication: PYODERMA GANGRENOSUM
     Dosage: INDUCTION 0,2,6 AND THEN EVERY 8 WEEKS.
     Route: 042
  2. REMICADE [Suspect]
     Active Substance: INFLIXIMAB
     Indication: PYODERMA GANGRENOSUM
     Dosage: LAST DOSE: END OF OCT-2014
     Route: 042
     Dates: start: 201410

REACTIONS (3)
  - Product use issue [Unknown]
  - Pyoderma gangrenosum [Not Recovered/Not Resolved]
  - Leg amputation [Unknown]
